FAERS Safety Report 6435075-1 (Version None)
Quarter: 2009Q4

REPORT INFORMATION
  Report Type: 
  Country: None (occurrence: None)
  Receive Date: 20091109
  Receipt Date: 20091109
  Transmission Date: 20100525
  Serious: Yes (Disabling)
  Sender: FDA-Public Use
  Company Number: None

PATIENT
  Age: 63 Year
  Sex: Female
  Weight: 68.0396 kg

DRUGS (1)
  1. LATISSE [Suspect]
     Indication: GROWTH OF EYELASHES
     Dosage: ONE, OPHTHALMIC
     Route: 047
     Dates: start: 20091105, end: 20091105

REACTIONS (3)
  - DRY EYE [None]
  - OCULAR HYPERAEMIA [None]
  - TINNITUS [None]
